FAERS Safety Report 16325710 (Version 1)
Quarter: 2019Q2

REPORT INFORMATION
  Report Type: Spontaneous
  Country: AT (occurrence: AT)
  Receive Date: 20190517
  Receipt Date: 20190517
  Transmission Date: 20190711
  Serious: Yes (Other)
  Sender: FDA-Public Use
  Company Number: AT-BRACCO-2019AT02330

PATIENT
  Sex: Female

DRUGS (1)
  1. MULTIHANCE [Suspect]
     Active Substance: GADOBENATE DIMEGLUMINE
     Dosage: UNK UNK, SINGLE

REACTIONS (11)
  - Feeling abnormal [Unknown]
  - Muscular weakness [Unknown]
  - Heart rate increased [Unknown]
  - Visual impairment [Unknown]
  - Gait disturbance [Unknown]
  - Nausea [Unknown]
  - Headache [Unknown]
  - Hypertension [Unknown]
  - Musculoskeletal chest pain [Unknown]
  - Speech disorder [Unknown]
  - Pain [Unknown]
